FAERS Safety Report 10701698 (Version 2)
Quarter: 2015Q2

REPORT INFORMATION
  Report Type: Spontaneous
  Country: FR (occurrence: FR)
  Receive Date: 20150109
  Receipt Date: 20150430
  Transmission Date: 20150821
  Serious: Yes (Hospitalization, Other)
  Sender: FDA-Public Use
  Company Number: FR-PFIZER INC-2015003918

PATIENT
  Age: 39 Year
  Sex: Male

DRUGS (12)
  1. MAG 2 [Suspect]
     Active Substance: MAGNESIUM CHLORIDE
     Dosage: 1 SACHET-DOSE, TWICE A DAY
     Route: 048
  2. ORACILLINE [Suspect]
     Active Substance: PENICILLIN V
     Dosage: 1 DF, TWICE A DAY
     Route: 048
  3. PROGRAF [Suspect]
     Active Substance: TACROLIMUS\TACROLIMUS ANHYDROUS
     Dosage: 1 MG, ONCE DAILY
     Route: 048
     Dates: start: 20131202, end: 20141217
  4. KALEORID [Suspect]
     Active Substance: POTASSIUM CHLORIDE
     Dosage: 1 G, TWICE A DAY
     Route: 048
  5. CHOLECALCIFEROL [Suspect]
     Active Substance: CHOLECALCIFEROL
     Dosage: 1 DF, TWICE A DAY
     Route: 048
  6. XANAX [Suspect]
     Active Substance: ALPRAZOLAM
     Dosage: 0.5 MG, THREE TIMES DAILY
     Route: 048
  7. ZELITREX [Suspect]
     Active Substance: VALACYCLOVIR HYDROCHLORIDE
     Dosage: 500 MG, TWICE A DAY
     Route: 048
  8. FUNGIZONE [Suspect]
     Active Substance: AMPHOTERICIN B
     Dosage: UNK, AS NEEDED
     Route: 048
  9. PARACETAMOL [Suspect]
     Active Substance: ACETAMINOPHEN
     Dosage: 1 G, AS NEEDED
     Route: 048
  10. PREDNISONE. [Suspect]
     Active Substance: PREDNISONE
     Dosage: 7.5 MG, 1X/DAY
     Route: 048
  11. OMEPRAZOLE. [Suspect]
     Active Substance: OMEPRAZOLE
     Dosage: 20 MG, ONCE DAILY
     Route: 048
  12. TRAMADOL BASE [Suspect]
     Active Substance: TRAMADOL
     Dosage: 1 DF, DAILY
     Route: 048

REACTIONS (4)
  - Peripheral sensory neuropathy [Recovered/Resolved with Sequelae]
  - Ophthalmoplegia [Unknown]
  - Dysarthria [Unknown]
  - Graft versus host disease [Unknown]

NARRATIVE: CASE EVENT DATE: 2014
